FAERS Safety Report 10686765 (Version 1)
Quarter: 2015Q1

REPORT INFORMATION
  Report Type: Spontaneous
  Country: BR (occurrence: BR)
  Receive Date: 20150101
  Receipt Date: 20150101
  Transmission Date: 20150720
  Serious: Yes (Other)
  Sender: FDA-Public Use
  Company Number: PHHY2014BR166969

PATIENT
  Sex: Female

DRUGS (1)
  1. ENABLEX [Suspect]
     Active Substance: DARIFENACIN\DARIFENACIN HYDROBROMIDE
     Indication: PRODUCT USED FOR UNKNOWN INDICATION
     Route: 065

REACTIONS (2)
  - Vision blurred [Unknown]
  - Glaucoma [Unknown]
